FAERS Safety Report 9837793 (Version 1)
Quarter: 2013Q4

REPORT INFORMATION
  Report Type: Spontaneous
  Country: GB (occurrence: None)
  Receive Date: 20131203
  Receipt Date: 20131203
  Transmission Date: 20140711
  Serious: Yes (Other)
  Sender: FDA-Public Use
  Company Number: 2013GMK006490

PATIENT
  Age: 66 Year
  Sex: Male
  Weight: 76 kg

DRUGS (4)
  1. MONTELUKAST (MONTELUKAST) [Suspect]
     Indication: ASTHMA
     Dosage: OD
     Route: 048
     Dates: start: 201209
  2. DIHYDROCODEINE (DIHYDROCODEINE) [Concomitant]
  3. SERETIDE (FLUTICASONE PROPIONATE, SALMETEROL XINAFOATE) [Concomitant]
  4. VENTOLIN (SALBUTAMOL) [Concomitant]

REACTIONS (1)
  - Contusion [None]
